FAERS Safety Report 15452714 (Version 2)
Quarter: 2019Q1

REPORT INFORMATION
  Report Type: Report from Study
  Country: JP (occurrence: JP)
  Receive Date: 20181001
  Receipt Date: 20190327
  Transmission Date: 20190417
  Serious: Yes (Other)
  Sender: FDA-Public Use
  Company Number: JP-AMGEN-JPNNI2018135749

PATIENT
  Age: 48 Year
  Sex: Female

DRUGS (33)
  1. FLUOROURACIL. [Concomitant]
     Active Substance: FLUOROURACIL
     Dosage: 897 MILLIGRAM
     Route: 041
     Dates: start: 20170607, end: 20170607
  2. EPIRUBICIN [Concomitant]
     Active Substance: EPIRUBICIN
     Indication: BREAST CANCER STAGE II
     Dosage: UNK MG
     Route: 041
  3. EPIRUBICIN [Concomitant]
     Active Substance: EPIRUBICIN
     Dosage: 180 MILLIGRAM
     Route: 041
     Dates: start: 20170719, end: 20170719
  4. FAMOTIDINE. [Concomitant]
     Active Substance: FAMOTIDINE
     Indication: PRODUCT USED FOR UNKNOWN INDICATION
     Dosage: UNK
     Route: 048
  5. PEGFILGRASTIM [Suspect]
     Active Substance: PEGFILGRASTIM
     Dosage: 3.6 MILLIGRAM
     Route: 058
     Dates: start: 20170922, end: 20170922
  6. CYCLOPHOSPHAMIDE. [Concomitant]
     Active Substance: CYCLOPHOSPHAMIDE
     Dosage: 1098 MILLIGRAM
     Route: 041
     Dates: start: 20170920, end: 20170920
  7. DOCETAXEL. [Concomitant]
     Active Substance: DOCETAXEL
     Dosage: 137 MILLIGRAM
     Route: 041
     Dates: start: 20170830, end: 20170830
  8. PEGFILGRASTIM [Suspect]
     Active Substance: PEGFILGRASTIM
     Dosage: 3.6 MILLIGRAM
     Route: 058
     Dates: start: 20170901, end: 20170901
  9. FLUOROURACIL. [Concomitant]
     Active Substance: FLUOROURACIL
     Indication: BREAST CANCER STAGE II
     Dosage: UNK MG
     Route: 041
  10. FLUOROURACIL. [Concomitant]
     Active Substance: FLUOROURACIL
     Dosage: 897 MILLIGRAM
     Route: 041
     Dates: start: 20170719, end: 20170719
  11. DECADRON [Concomitant]
     Active Substance: DEXAMETHASONE
     Indication: PRODUCT USED FOR UNKNOWN INDICATION
     Dosage: UNK
     Route: 048
  12. CALONAL [Concomitant]
     Active Substance: ACETAMINOPHEN
     Indication: PRODUCT USED FOR UNKNOWN INDICATION
     Dosage: UNK
     Route: 048
  13. REBAMIPIDE [Concomitant]
     Active Substance: REBAMIPIDE
     Indication: PRODUCT USED FOR UNKNOWN INDICATION
     Dosage: UNK
     Route: 048
  14. LOXOPROFEN [LOXOPROFEN SODIUM] [Concomitant]
     Active Substance: LOXOPROFEN SODIUM
     Indication: PRODUCT USED FOR UNKNOWN INDICATION
     Dosage: UNK
     Route: 048
  15. PEGFILGRASTIM [Suspect]
     Active Substance: PEGFILGRASTIM
     Indication: COLONY STIMULATING FACTOR THERAPY
     Dosage: 3.6 MILLIGRAM
     Route: 058
     Dates: start: 20170609, end: 20170609
  16. PEGFILGRASTIM [Suspect]
     Active Substance: PEGFILGRASTIM
     Dosage: 3.6 MILLIGRAM
     Route: 058
     Dates: start: 20170630, end: 20170630
  17. EPIRUBICIN [Concomitant]
     Active Substance: EPIRUBICIN
     Dosage: 180 MILLIGRAM
     Route: 041
     Dates: start: 20170607, end: 20170607
  18. EPIRUBICIN [Concomitant]
     Active Substance: EPIRUBICIN
     Dosage: 180 MILLIGRAM
     Route: 041
     Dates: start: 20170628, end: 20170628
  19. CYCLOPHOSPHAMIDE. [Concomitant]
     Active Substance: CYCLOPHOSPHAMIDE
     Indication: BREAST CANCER STAGE II
     Dosage: UNK MG
     Route: 041
  20. CYCLOPHOSPHAMIDE. [Concomitant]
     Active Substance: CYCLOPHOSPHAMIDE
     Dosage: 897 MILLIGRAM
     Route: 041
     Dates: start: 20170607, end: 20170607
  21. DOCETAXEL. [Concomitant]
     Active Substance: DOCETAXEL
     Indication: BREAST CANCER STAGE II
     Dosage: 137 MILLIGRAM
     Route: 041
     Dates: start: 20170809, end: 20170809
  22. DOCETAXEL. [Concomitant]
     Active Substance: DOCETAXEL
     Dosage: 137 MILLIGRAM
     Route: 041
     Dates: start: 20170920, end: 20170920
  23. EMEND [Concomitant]
     Active Substance: APREPITANT
     Indication: PRODUCT USED FOR UNKNOWN INDICATION
     Dosage: UNK
     Route: 048
  24. DOMPERIDONE [Concomitant]
     Active Substance: DOMPERIDONE
     Indication: PRODUCT USED FOR UNKNOWN INDICATION
     Dosage: UNK
     Route: 048
  25. SHAKUYAKUKANZOTO [Concomitant]
     Active Substance: HERBALS
     Indication: PRODUCT USED FOR UNKNOWN INDICATION
     Route: 048
  26. MAGMITT [Concomitant]
     Active Substance: MAGNESIUM OXIDE
     Indication: PRODUCT USED FOR UNKNOWN INDICATION
     Dosage: UNK
     Route: 048
  27. PEGFILGRASTIM [Suspect]
     Active Substance: PEGFILGRASTIM
     Dosage: 3.6 MILLIGRAM
     Route: 058
     Dates: start: 20170721, end: 20170721
  28. FLUOROURACIL. [Concomitant]
     Active Substance: FLUOROURACIL
     Dosage: 897 MILLIGRAM
     Route: 041
     Dates: start: 20170628, end: 20170628
  29. CYCLOPHOSPHAMIDE. [Concomitant]
     Active Substance: CYCLOPHOSPHAMIDE
     Dosage: 897 MILLIGRAM
     Route: 041
     Dates: start: 20170628, end: 20170628
  30. CYCLOPHOSPHAMIDE. [Concomitant]
     Active Substance: CYCLOPHOSPHAMIDE
     Dosage: 897 MILLIGRAM
     Route: 041
     Dates: start: 20170719, end: 20170719
  31. PEGFILGRASTIM [Suspect]
     Active Substance: PEGFILGRASTIM
     Dosage: 3.6 MILLIGRAM
     Route: 058
     Dates: start: 20170812, end: 20170812
  32. CYCLOPHOSPHAMIDE. [Concomitant]
     Active Substance: CYCLOPHOSPHAMIDE
     Dosage: 1098 MILLIGRAM
     Route: 041
     Dates: start: 20170809, end: 20170809
  33. CYCLOPHOSPHAMIDE. [Concomitant]
     Active Substance: CYCLOPHOSPHAMIDE
     Dosage: 1098 MILLIGRAM
     Route: 041
     Dates: start: 20170830, end: 20170830

REACTIONS (1)
  - Blast cell count increased [Recovering/Resolving]

NARRATIVE: CASE EVENT DATE: 20170927
